FAERS Safety Report 18951373 (Version 1)
Quarter: 2021Q1

REPORT INFORMATION
  Report Type: Spontaneous
  Country: US (occurrence: US)
  Receive Date: 20210301
  Receipt Date: 20210301
  Transmission Date: 20210420
  Serious: Yes (Other)
  Sender: FDA-Public Use
  Company Number: US-JNJFOC-20210238295

PATIENT
  Age: 59 Year
  Sex: Female
  Weight: 69.46 kg

DRUGS (1)
  1. STELARA [Suspect]
     Active Substance: USTEKINUMAB
     Indication: CROHN^S DISEASE
     Route: 058
     Dates: start: 20190730

REACTIONS (5)
  - Paraesthesia [Unknown]
  - Osteoporosis [Unknown]
  - Extraocular muscle paresis [Recovered/Resolved]
  - Diplopia [Recovered/Resolved]
  - Tremor [Unknown]

NARRATIVE: CASE EVENT DATE: 202011
